FAERS Safety Report 7441492-3 (Version None)
Quarter: 2011Q2

REPORT INFORMATION
  Report Type: 
  Country: None (occurrence: None)
  Receive Date: 20110419
  Receipt Date: 20110405
  Transmission Date: 20111010
  Serious: No
  Sender: FDA-Public Use
  Company Number: LTI2011A00077

PATIENT
  Age: 63 Year
  Sex: Male

DRUGS (1)
  1. ACTOPLUS MET [Suspect]
     Indication: TYPE 2 DIABETES MELLITUS
     Dosage: 2 TAB. (1 TAB., 2 IN 1 D), ORAL
     Route: 048
     Dates: start: 20100101, end: 20110112

REACTIONS (1)
  - PULMONARY FIBROSIS [None]
